FAERS Safety Report 9910796 (Version 2)
Quarter: 2014Q3

REPORT INFORMATION
  Report Type: Spontaneous
  Country: GB (occurrence: GB)
  Receive Date: 20140219
  Receipt Date: 20140723
  Transmission Date: 20150326
  Serious: Yes (Other)
  Sender: FDA-Public Use
  Company Number: GB-TEVA-463263ISR

PATIENT
  Age: 6 Decade
  Sex: Male
  Weight: 76.2 kg

DRUGS (2)
  1. RAMIPRIL. [Suspect]
     Active Substance: RAMIPRIL
     Indication: HYPERTENSION
     Route: 048
     Dates: start: 20090101, end: 20120101
  2. DOXAZOSIN [Concomitant]
     Active Substance: DOXAZOSIN\DOXAZOSIN MESYLATE

REACTIONS (3)
  - Lacrimation increased [Recovered/Resolved with Sequelae]
  - Parosmia [Recovered/Resolved with Sequelae]
  - Head banging [Recovered/Resolved with Sequelae]

NARRATIVE: CASE EVENT DATE: 20110101
